FAERS Safety Report 25384182 (Version 2)
Quarter: 2025Q2

REPORT INFORMATION
  Report Type: Spontaneous
  Country: DE (occurrence: DE)
  Receive Date: 20250602
  Receipt Date: 20250629
  Transmission Date: 20250717
  Serious: No
  Sender: UCB
  Company Number: DE-UCBSA-2025031519

PATIENT
  Sex: Female

DRUGS (1)
  1. NEUPRO [Suspect]
     Active Substance: ROTIGOTINE
     Indication: Parkinson^s disease
     Dosage: 6 MILLIGRAM, ONCE DAILY (QD)
     Route: 062
     Dates: start: 2024

REACTIONS (2)
  - Restless legs syndrome [Not Recovered/Not Resolved]
  - Product adhesion issue [Unknown]

NARRATIVE: CASE EVENT DATE: 20250101
